FAERS Safety Report 9559884 (Version 1)
Quarter: 2013Q3

REPORT INFORMATION
  Report Type: Spontaneous
  Country: US (occurrence: None)
  Receive Date: 20130821
  Receipt Date: 20130821
  Transmission Date: 20140515
  Serious: Yes (Other)
  Sender: FDA-Public Use
  Company Number: 1000046338

PATIENT
  Age: 76 Year
  Sex: Female

DRUGS (3)
  1. TUDORZA PRESSAIR [Suspect]
     Indication: CHRONIC OBSTRUCTIVE PULMONARY DISEASE
     Dosage: (400 MCG, 2 IN 1 D)
     Route: 055
     Dates: start: 20130628
  2. ALPRAZOLAM [Concomitant]
  3. ISOSORBIDE [Concomitant]

REACTIONS (1)
  - Vision blurred [None]
